FAERS Safety Report 5951678-2 (Version None)
Quarter: 2008Q4

REPORT INFORMATION
  Report Type: 
  Country: None (occurrence: None)
  Receive Date: 20081113
  Receipt Date: 20081106
  Transmission Date: 20090506
  Serious: Yes (Other)
  Sender: FDA-Public Use
  Company Number: US-ALLERGAN-0809609US

PATIENT
  Sex: Female
  Weight: 16.327 kg

DRUGS (3)
  1. BOTOX [Suspect]
     Indication: MUSCLE SPASTICITY
     Dosage: 100 UNITS, SINGLE
     Route: 030
     Dates: start: 20080417, end: 20080417
  2. BOTOX [Suspect]
     Indication: CEREBRAL PALSY
  3. LAMICTAL [Concomitant]
     Indication: CONVULSION
     Dosage: 100 MG, QD
     Route: 048
     Dates: start: 20040101, end: 20080417

REACTIONS (1)
  - FAECAL INCONTINENCE [None]
